FAERS Safety Report 21587808 (Version 1)
Quarter: 2022Q4

REPORT INFORMATION
  Report Type: Spontaneous
  Country: CA (occurrence: CA)
  Receive Date: 20221114
  Receipt Date: 20221114
  Transmission Date: 20230112
  Serious: Yes (Hospitalization)
  Sender: FDA-Public Use
  Company Number: None

PATIENT
  Age: 78 Year
  Sex: Male
  Weight: 81 kg

DRUGS (16)
  1. CARBOPLATIN [Suspect]
     Active Substance: CARBOPLATIN
     Indication: Lip and/or oral cavity cancer
     Dosage: SOLUTION INTRAVENOUS
  2. ETOPOSIDE [Suspect]
     Active Substance: ETOPOSIDE
     Indication: Lip and/or oral cavity cancer
  3. AMOXICILLIN\CLAVULANIC ACID [Concomitant]
     Active Substance: AMOXICILLIN\CLAVULANIC ACID
  4. CANDESARTAN [Concomitant]
     Active Substance: CANDESARTAN
  5. DEXAMETHASONE [Concomitant]
     Active Substance: DEXAMETHASONE
     Route: 065
  6. BETAMETHASONE\CALCIPOTRIENE [Concomitant]
     Active Substance: BETAMETHASONE\CALCIPOTRIENE
  7. HYDROMORPHONE [Concomitant]
     Active Substance: HYDROMORPHONE
  8. IPRATROPIUM [Concomitant]
     Active Substance: IPRATROPIUM
  9. LANSOPRAZOLE [Concomitant]
     Active Substance: LANSOPRAZOLE
     Dosage: DELAYED RELEASE
  10. LORAZEPAM [Concomitant]
     Active Substance: LORAZEPAM
     Route: 065
  11. METOCLOPRAMIDE [Concomitant]
     Active Substance: METOCLOPRAMIDE
  12. ONDANSETRON [Concomitant]
     Active Substance: ONDANSETRON
  13. POLYETHYLENE GLYCOL [Concomitant]
     Active Substance: POLYETHYLENE GLYCOL
  14. PROCHLORPERAZINE [Concomitant]
     Active Substance: PROCHLORPERAZINE
  15. ROSUVASTATIN [Concomitant]
     Active Substance: ROSUVASTATIN
     Route: 065
  16. VITAMIN B COMPLEX [Concomitant]
     Active Substance: CYANOCOBALAMIN\DEXPANTHENOL\NIACINAMIDE\PYRIDOXINE HYDROCHLORIDE\RIBOFLAVIN 5^-PHOSPHATE SODIUM\THIA

REACTIONS (2)
  - Febrile neutropenia [Recovered/Resolved]
  - Pneumonia [Recovered/Resolved]
